FAERS Safety Report 4612425-X (Version None)
Quarter: 2005Q1

REPORT INFORMATION
  Report Type: 
  Country: None (occurrence: None)
  Receive Date: 20050316
  Receipt Date: 20050225
  Transmission Date: 20050727
  Serious: No
  Sender: FDA-Public Use
  Company Number: USA050189411

PATIENT
  Age: 9 Year
  Sex: Male
  Weight: 32 kg

DRUGS (1)
  1. STRATTERA [Suspect]
     Indication: ATTENTION DEFICIT/HYPERACTIVITY DISORDER
     Dosage: 40 MG
     Dates: start: 20040914, end: 20041216

REACTIONS (4)
  - ABDOMINAL PAIN UPPER [None]
  - ANOREXIA [None]
  - DIZZINESS [None]
  - NAUSEA [None]
